FAERS Safety Report 16661712 (Version 1)
Quarter: 2019Q3

REPORT INFORMATION
  Report Type: Report from Study
  Country: IT (occurrence: IT)
  Receive Date: 20190802
  Receipt Date: 20190802
  Transmission Date: 20191004
  Serious: Yes (Other)
  Sender: FDA-Public Use
  Company Number: IT-PFIZER INC-2019325982

PATIENT
  Age: 45 Year
  Sex: Female

DRUGS (4)
  1. CORTISONE [Interacting]
     Active Substance: CORTISONE
     Indication: RHEUMATOID ARTHRITIS
     Dosage: UNK
     Dates: start: 2005
  2. ENBREL [Interacting]
     Active Substance: ETANERCEPT
     Dosage: UNK
  3. METHOTREXATE SODIUM. [Suspect]
     Active Substance: METHOTREXATE SODIUM
     Dosage: UNK
     Dates: start: 2005
  4. AGALSIDASE BETA [Suspect]
     Active Substance: AGALSIDASE BETA
     Indication: FABRY^S DISEASE
     Dosage: 180 ML/H, UNK
     Route: 042
     Dates: start: 2005, end: 2009

REACTIONS (3)
  - Drug interaction [Recovered/Resolved]
  - Vein disorder [Recovered/Resolved]
  - Haemorrhage [Recovered/Resolved]

NARRATIVE: CASE EVENT DATE: 2005
